APPROVED DRUG PRODUCT: PYRIDOXINE HYDROCHLORIDE
Active Ingredient: PYRIDOXINE HYDROCHLORIDE
Strength: 100MG/ML
Dosage Form/Route: INJECTABLE;INJECTION
Application: A087967 | Product #001
Applicant: EPIC PHARMA LLC
Approved: Oct 1, 1982 | RLD: No | RS: No | Type: DISCN